FAERS Safety Report 6173111-0 (Version None)
Quarter: 2009Q2

REPORT INFORMATION
  Report Type: 
  Country: None (occurrence: None)
  Receive Date: 20090430
  Receipt Date: 20090421
  Transmission Date: 20091009
  Serious: Yes (Other)
  Sender: FDA-Public Use
  Company Number: US-PFIZER INC-2009167598

PATIENT
  Sex: Female
  Weight: 57.143 kg

DRUGS (2)
  1. SUTENT [Suspect]
     Indication: METASTATIC RENAL CELL CARCINOMA
     Dosage: 50 MG, 1X/DAY, EVERYDAY
     Route: 048
     Dates: start: 20081010
  2. LORTAB [Concomitant]
     Dosage: 7.5 MG, 1X/DAY

REACTIONS (4)
  - HAEMORRHAGE [None]
  - PERIORBITAL OEDEMA [None]
  - PLATELET COUNT DECREASED [None]
  - SWELLING [None]
